FAERS Safety Report 26197908 (Version 1)
Quarter: 2025Q4

REPORT INFORMATION
  Report Type: Spontaneous
  Country: GB (occurrence: GB)
  Receive Date: 20251224
  Receipt Date: 20251224
  Transmission Date: 20260118
  Serious: Yes (Congenital Anomaly, Other)
  Sender: ELI LILLY AND COMPANY
  Company Number: GB-ASTRAZENECA-202512GLO004316GB

PATIENT

DRUGS (32)
  1. DULOXETINE HYDROCHLORIDE [Suspect]
     Active Substance: DULOXETINE HYDROCHLORIDE
     Indication: Product used for unknown indication
     Dosage: UNK, UNKNOWN
     Route: 064
     Dates: start: 20230223
  2. DULOXETINE HYDROCHLORIDE [Suspect]
     Active Substance: DULOXETINE HYDROCHLORIDE
     Indication: Product used for unknown indication
     Dosage: UNK, UNKNOWN
     Route: 064
     Dates: start: 20230223
  3. BECLOMETHASONE DIPROPIONATE\CAMPHOR [Suspect]
     Active Substance: BECLOMETHASONE DIPROPIONATE\CAMPHOR
     Indication: Product used for unknown indication
     Dosage: 200 UG, BID
     Route: 064
     Dates: start: 20250528
  4. BECLOMETHASONE DIPROPIONATE\CAMPHOR [Suspect]
     Active Substance: BECLOMETHASONE DIPROPIONATE\CAMPHOR
     Indication: Product used for unknown indication
     Dosage: 200 UG, BID
     Route: 064
     Dates: start: 20250528
  5. QUETIAPINE FUMARATE [Suspect]
     Active Substance: QUETIAPINE FUMARATE
     Indication: Product used for unknown indication
     Dosage: 50 MILLIGRAM, QD
     Route: 064
     Dates: start: 20150120
  6. QUETIAPINE FUMARATE [Suspect]
     Active Substance: QUETIAPINE FUMARATE
     Indication: Product used for unknown indication
     Dosage: 50 MILLIGRAM, QD
     Route: 064
     Dates: start: 20150120
  7. OMEPRAZOLE [Suspect]
     Active Substance: OMEPRAZOLE
     Indication: Product used for unknown indication
     Dosage: 40 MILLIGRAM, QD
     Route: 064
     Dates: start: 20240731
  8. OMEPRAZOLE [Suspect]
     Active Substance: OMEPRAZOLE
     Indication: Product used for unknown indication
     Dosage: 40 MILLIGRAM, QD
     Route: 064
     Dates: start: 20240731
  9. BECLOMETHASONE DIPROPIONATE\BORNEOL\CAMPHOR (SYNTHETIC)\MENTHOL\METHYL [Suspect]
     Active Substance: BECLOMETHASONE DIPROPIONATE\BORNEOL\CAMPHOR (SYNTHETIC)\MENTHOL\METHYL SALICYLATE\THYMOL
     Indication: Product used for unknown indication
     Dosage: 400 UG, BID
     Route: 064
  10. BECLOMETHASONE DIPROPIONATE\BORNEOL\CAMPHOR (SYNTHETIC)\MENTHOL\METHYL [Suspect]
     Active Substance: BECLOMETHASONE DIPROPIONATE\BORNEOL\CAMPHOR (SYNTHETIC)\MENTHOL\METHYL SALICYLATE\THYMOL
     Indication: Product used for unknown indication
     Dosage: 400 UG, BID
     Route: 064
  11. MIRTAZAPINE [Suspect]
     Active Substance: MIRTAZAPINE
     Indication: Product used for unknown indication
     Dosage: 45 MG, UNKNOWN
     Route: 064
     Dates: start: 20220605
  12. MIRTAZAPINE [Suspect]
     Active Substance: MIRTAZAPINE
     Indication: Product used for unknown indication
     Dosage: 45 MG, UNKNOWN
     Route: 064
     Dates: start: 20220605
  13. ENOXAPARIN SODIUM [Suspect]
     Active Substance: ENOXAPARIN SODIUM
     Indication: Product used for unknown indication
     Dosage: 40 MG, UNKNOWN
     Route: 064
     Dates: start: 20250514
  14. ENOXAPARIN SODIUM [Suspect]
     Active Substance: ENOXAPARIN SODIUM
     Indication: Product used for unknown indication
     Dosage: 40 MG, UNKNOWN
     Route: 064
     Dates: start: 20250514
  15. LACTULOSE [Suspect]
     Active Substance: LACTULOSE
     Indication: Product used for unknown indication
     Dosage: 5 ML, UNKNOWN
     Route: 064
     Dates: start: 20250409
  16. LACTULOSE [Suspect]
     Active Substance: LACTULOSE
     Indication: Product used for unknown indication
     Dosage: 5 ML, UNKNOWN
     Route: 064
     Dates: start: 20250409
  17. POLYETHYLENE GLYCOLS [Suspect]
     Active Substance: POLYETHYLENE GLYCOLS
     Indication: Product used for unknown indication
     Dosage: 1-2 SACHETS DAILY
     Route: 064
     Dates: start: 20250409
  18. POLYETHYLENE GLYCOLS [Suspect]
     Active Substance: POLYETHYLENE GLYCOLS
     Indication: Product used for unknown indication
     Dosage: 1-2 SACHETS DAILY
     Route: 064
     Dates: start: 20250409
  19. DISODIUM HYDROGEN CITRATE\SODIUM LAURYL SULFOACETATE\SORBIC ACID [Suspect]
     Active Substance: DISODIUM HYDROGEN CITRATE\SODIUM LAURYL SULFOACETATE\SORBIC ACID
     Indication: Product used for unknown indication
     Dosage: 1 AS NEEDED
     Route: 064
     Dates: start: 20250807
  20. DISODIUM HYDROGEN CITRATE\SODIUM LAURYL SULFOACETATE\SORBIC ACID [Suspect]
     Active Substance: DISODIUM HYDROGEN CITRATE\SODIUM LAURYL SULFOACETATE\SORBIC ACID
     Indication: Product used for unknown indication
     Dosage: 1 AS NEEDED
     Route: 064
     Dates: start: 20250807
  21. SENNOSIDES A AND B [Suspect]
     Active Substance: SENNOSIDES A AND B
     Indication: Product used for unknown indication
     Dosage: 150 MG, UNKNOWN
     Route: 064
     Dates: start: 20240731
  22. SENNOSIDES A AND B [Suspect]
     Active Substance: SENNOSIDES A AND B
     Indication: Product used for unknown indication
     Dosage: 150 MG, UNKNOWN
     Route: 064
     Dates: start: 20240731
  23. ALBUTEROL [Suspect]
     Active Substance: ALBUTEROL
     Indication: Product used for unknown indication
     Dosage: 2 PUFFS AS NEEDED
     Route: 064
     Dates: start: 20240528
  24. ALBUTEROL [Suspect]
     Active Substance: ALBUTEROL
     Indication: Product used for unknown indication
     Dosage: 2 PUFFS AS NEEDED
     Route: 064
     Dates: start: 20240528
  25. AMOXICILLIN [Suspect]
     Active Substance: AMOXICILLIN
     Indication: Product used for unknown indication
     Dosage: 1 DOSAGE FORM, TID FOR WEEK
     Route: 064
     Dates: start: 20250925
  26. AMOXICILLIN [Suspect]
     Active Substance: AMOXICILLIN
     Indication: Product used for unknown indication
     Dosage: 1 DOSAGE FORM, TID FOR WEEK
     Route: 064
     Dates: start: 20250925
  27. CLOTRIMAZOLE [Suspect]
     Active Substance: CLOTRIMAZOLE
     Indication: Product used for unknown indication
     Dosage: 200 MG, DAILY AT NIGHT
     Route: 064
     Dates: start: 20250804, end: 20250811
  28. CLOTRIMAZOLE [Suspect]
     Active Substance: CLOTRIMAZOLE
     Indication: Product used for unknown indication
     Dosage: 200 MG, DAILY AT NIGHT
     Route: 064
     Dates: start: 20250804, end: 20250811
  29. CHOLECALCIFEROL [Suspect]
     Active Substance: CHOLECALCIFEROL
     Indication: Product used for unknown indication
     Dosage: 400 UNITS ONCE DAILY
     Route: 064
     Dates: start: 20250320
  30. CHOLECALCIFEROL [Suspect]
     Active Substance: CHOLECALCIFEROL
     Indication: Product used for unknown indication
     Dosage: 400 UNITS ONCE DAILY
     Route: 064
     Dates: start: 20250320
  31. FOLIC ACID [Concomitant]
     Active Substance: FOLIC ACID
     Indication: Product used for unknown indication
     Dosage: 400 UG, UNKNOWN
     Route: 064
     Dates: start: 20250804, end: 20250811
  32. FOLIC ACID [Concomitant]
     Active Substance: FOLIC ACID
     Indication: Product used for unknown indication
     Dosage: 400 UG, UNKNOWN
     Route: 064
     Dates: start: 20250804, end: 20250811

REACTIONS (2)
  - Cleft palate [Not Recovered/Not Resolved]
  - Foetal exposure during pregnancy [Recovered/Resolved]

NARRATIVE: CASE EVENT DATE: 20251101
